FAERS Safety Report 7276759-5 (Version None)
Quarter: 2011Q1

REPORT INFORMATION
  Report Type: 
  Country: None (occurrence: None)
  Receive Date: 20110206
  Receipt Date: 20110125
  Transmission Date: 20110831
  Serious: Yes (Death)
  Sender: FDA-Public Use
  Company Number: GB-BAYER-2011-001985

PATIENT
  Age: 25 Year
  Sex: Male

DRUGS (16)
  1. EFAVIRENZ [Concomitant]
  2. FLUCONAZOLE [Suspect]
     Indication: ORAL CANDIDIASIS
  3. AMIKACIN [Concomitant]
     Indication: TUBERCULOSIS
     Route: 042
  4. CLOFAZIMINE [Concomitant]
  5. ETHAMBUTOL HYDROCHLORIDE [Concomitant]
     Indication: TUBERCULOSIS
  6. LINEZOLID [Concomitant]
     Indication: TUBERCULOSIS
  7. DARUNAVIR [Suspect]
     Indication: HIV INFECTION
  8. PYRAZINAMIDE [Concomitant]
     Indication: TUBERCULOSIS
  9. VALGANCICLOVIR HCL [Concomitant]
  10. HEPARIN [Concomitant]
  11. PROTHIONAMIDE [Concomitant]
     Indication: TUBERCULOSIS
  12. MOXIFLOXACIN IV [Suspect]
     Indication: TUBERCULOSIS
  13. ONDANSETRON [Suspect]
  14. RITONAVIR [Suspect]
     Indication: HIV INFECTION
  15. CYCLOSERINE [Concomitant]
     Indication: TUBERCULOSIS
  16. TRUVADA [Concomitant]

REACTIONS (1)
  - ARRHYTHMIA [None]
